FAERS Safety Report 4385770-3 (Version None)
Quarter: 2004Q2

REPORT INFORMATION
  Report Type: 
  Country: None (occurrence: None)
  Receive Date: 20040628
  Receipt Date: 20040623
  Transmission Date: 20050107
  Serious: Yes (Hospitalization)
  Sender: FDA-Public Use
  Company Number: IT-MERCK-0406ITA00034

PATIENT
  Age: 76 Year
  Sex: Female

DRUGS (2)
  1. CARBAMAZEPINE [Concomitant]
     Route: 048
  2. VIOXX [Suspect]
     Indication: OSTEOARTHRITIS
     Route: 048
     Dates: start: 20040301, end: 20040320

REACTIONS (1)
  - MELAENA [None]
